FAERS Safety Report 19307588 (Version 3)
Quarter: 2024Q2

REPORT INFORMATION
  Report Type: Spontaneous
  Country: US (occurrence: US)
  Receive Date: 20210525
  Receipt Date: 20240412
  Transmission Date: 20240715
  Serious: Yes (Hospitalization, Other)
  Sender: FDA-Public Use
  Company Number: US-PURDUE PHARMA-USA-2020-0188528

PATIENT
  Sex: Female
  Weight: 61.23 kg

DRUGS (20)
  1. OXYCONTIN [Suspect]
     Active Substance: OXYCODONE HYDROCHLORIDE
     Indication: Pain
     Dosage: 30 MG, TID (UP TO 1200 MG IN THE PAST)
     Route: 048
     Dates: start: 200001
  2. MORPHINE SULFATE [Suspect]
     Active Substance: MORPHINE SULFATE
     Indication: Scoliosis
     Dosage: 30 MG, TID (1 TABLET)
     Route: 048
     Dates: start: 2010
  3. MORPHINE SULFATE [Suspect]
     Active Substance: MORPHINE SULFATE
     Indication: Pain management
     Dosage: 120 MG, TID (1 TABLET)
     Route: 048
  4. MORPHINE SULFATE [Suspect]
     Active Substance: MORPHINE SULFATE
     Dosage: 300 MILLIGRAM, DAILY
     Route: 048
     Dates: start: 1990
  5. MORPHINE SULFATE [Suspect]
     Active Substance: MORPHINE SULFATE
     Dosage: 30 MILLIGRAM, TID (12YEARS)
     Route: 048
  6. DILAUDID [Suspect]
     Active Substance: HYDROMORPHONE HYDROCHLORIDE
     Indication: Scoliosis
     Dosage: 8 MG, DAILY (6 TIMES)
     Route: 048
     Dates: start: 1982
  7. DILAUDID [Suspect]
     Active Substance: HYDROMORPHONE HYDROCHLORIDE
     Indication: Pain management
  8. HYDROMORPHONE HYDROCHLORIDE [Suspect]
     Active Substance: HYDROMORPHONE HYDROCHLORIDE
     Indication: Scoliosis
     Dosage: UNKNOWN (SMALL PURPLE PILL)
     Route: 065
  9. HYDROMORPHONE HYDROCHLORIDE [Suspect]
     Active Substance: HYDROMORPHONE HYDROCHLORIDE
     Indication: Pain management
  10. OXYMORPHONE [Suspect]
     Active Substance: OXYMORPHONE
     Indication: Scoliosis
     Dosage: UNKNOWN (SMALL PURPLE PILL)
     Route: 065
  11. ACETAMINOPHEN\ORPHENADRINE CITRATE [Suspect]
     Active Substance: ACETAMINOPHEN\ORPHENADRINE CITRATE
     Indication: Scoliosis
     Dosage: UNKNOWN
     Route: 062
  12. CLONIDINE [Suspect]
     Active Substance: CLONIDINE
     Indication: Product used for unknown indication
     Dosage: UNKNOWN
     Route: 065
  13. DURAGESIC [Concomitant]
     Active Substance: FENTANYL
     Indication: Product used for unknown indication
     Dosage: 27 MILLIGRAM
     Route: 065
  14. TORADOL [Concomitant]
     Active Substance: KETOROLAC TROMETHAMINE
     Indication: Product used for unknown indication
     Dosage: UNK
     Route: 065
  15. CALCIPOTRIENE [Concomitant]
     Active Substance: CALCIPOTRIENE
     Indication: Product used for unknown indication
     Dosage: 0.005% (3-4X PER DAY)
     Route: 065
  16. XANAX [Concomitant]
     Active Substance: ALPRAZOLAM
     Indication: Product used for unknown indication
     Dosage: 4 MILLIGRAM, Q6H
     Route: 065
  17. LYRICA [Concomitant]
     Active Substance: PREGABALIN
     Indication: Product used for unknown indication
     Dosage: UNK
     Route: 065
  18. CLONIDINE [Concomitant]
     Active Substance: CLONIDINE
     Indication: Heart rate increased
     Dosage: 0.1 MILLIGRAM, TID
     Route: 065
  19. LIDOCAINE\PRILOCAINE [Concomitant]
     Active Substance: LIDOCAINE\PRILOCAINE
     Indication: Product used for unknown indication
     Dosage: UNK (THREE TIMES A DAY)
     Route: 065
  20. BENADRYL [Concomitant]
     Active Substance: DIPHENHYDRAMINE HYDROCHLORIDE
     Indication: Insomnia
     Dosage: UNK
     Route: 065

REACTIONS (24)
  - Suicide attempt [Unknown]
  - Suicidal ideation [Unknown]
  - Loss of consciousness [Unknown]
  - Drug dependence [Unknown]
  - Drug withdrawal syndrome [Unknown]
  - Diarrhoea [Unknown]
  - Sneezing [Unknown]
  - Vomiting [Unknown]
  - Hernia [Unknown]
  - Headache [Unknown]
  - Insomnia [Unknown]
  - Weight decreased [Unknown]
  - Decreased appetite [Unknown]
  - Walking aid user [Not Recovered/Not Resolved]
  - Loss of personal independence in daily activities [Unknown]
  - Extra dose administered [Unknown]
  - Pruritus [Unknown]
  - Abdominal discomfort [Unknown]
  - Dehydration [Unknown]
  - Palpitations [Unknown]
  - Heart rate increased [Unknown]
  - Itching scar [Unknown]
  - Muscle spasms [Unknown]
  - Crying [Unknown]

NARRATIVE: CASE EVENT DATE: 19850101
